FAERS Safety Report 6358645-8 (Version None)
Quarter: 2009Q3

REPORT INFORMATION
  Report Type: 
  Country: None (occurrence: None)
  Receive Date: 20090916
  Receipt Date: 20090709
  Transmission Date: 20100115
  Serious: Yes (Hospitalization)
  Sender: FDA-Public Use
  Company Number: US-ABBOTT-09P-163-0579114-00

PATIENT
  Sex: Male

DRUGS (14)
  1. TRILIPIX [Suspect]
     Indication: BLOOD TRIGLYCERIDES INCREASED
     Route: 048
  2. LOVAZA [Interacting]
     Indication: DRUG USE FOR UNKNOWN INDICATION
  3. KAPIDEX [Interacting]
     Indication: DRUG USE FOR UNKNOWN INDICATION
  4. KAPEDIX [Concomitant]
     Indication: DRUG USE FOR UNKNOWN INDICATION
     Route: 048
  5. CARDURA [Concomitant]
     Indication: BLOOD PRESSURE
     Route: 048
  6. CARDURA [Concomitant]
     Indication: PROSTATIC DISORDER
  7. LORTAB [Concomitant]
     Indication: ROTATOR CUFF SYNDROME
     Dosage: 7.5/500
  8. LOVAZA [Concomitant]
     Indication: BLOOD CHOLESTEROL
  9. ALLOPURINOL [Concomitant]
     Indication: DRUG USE FOR UNKNOWN INDICATION
  10. TYLENOL [Concomitant]
     Indication: DRUG USE FOR UNKNOWN INDICATION
  11. BENTYL [Concomitant]
     Indication: COLITIS
  12. FISH OIL [Concomitant]
     Indication: ARTHRALGIA
  13. FISH OIL [Concomitant]
     Indication: PAIN
  14. FISH OIL [Concomitant]
     Indication: BLOOD TRIGLYCERIDES

REACTIONS (6)
  - BLOOD TRIGLYCERIDES INCREASED [None]
  - DRUG INTERACTION [None]
  - NAUSEA [None]
  - PAIN [None]
  - PANCREATITIS [None]
  - PLEURAL EFFUSION [None]
